FAERS Safety Report 24453079 (Version 1)
Quarter: 2024Q4

REPORT INFORMATION
  Report Type: Spontaneous
  Country: US (occurrence: US)
  Receive Date: 20241017
  Receipt Date: 20241017
  Transmission Date: 20250114
  Serious: No
  Sender: SUNOVION
  Company Number: US-UROVANT SCIENCES GMBH-202407-URV-001071

PATIENT
  Sex: Female

DRUGS (1)
  1. GEMTESA [Suspect]
     Active Substance: VIBEGRON
     Indication: Product used for unknown indication
     Dosage: UNK,  6 OR 7 O^CLOCK AT NIGHT
     Route: 065
     Dates: start: 202407

REACTIONS (2)
  - Drug ineffective [Unknown]
  - Nocturia [Unknown]
